FAERS Safety Report 10748175 (Version 1)
Quarter: 2015Q1

REPORT INFORMATION
  Report Type: Spontaneous
  Country: PL (occurrence: PL)
  Receive Date: 20150129
  Receipt Date: 20150129
  Transmission Date: 20150721
  Serious: Yes (Hospitalization)
  Sender: FDA-Public Use
  Company Number: PL-TEVA-536179ISR

PATIENT
  Age: 51 Year
  Sex: Female
  Weight: 60 kg

DRUGS (3)
  1. SINGULAIR [Concomitant]
     Active Substance: MONTELUKAST SODIUM
     Indication: BRONCHITIS
     Route: 048
  2. ALVESCO [Concomitant]
     Active Substance: CICLESONIDE
     Indication: BRONCHITIS
     Route: 048
  3. NYSTATYNA TEVA [Suspect]
     Active Substance: NYSTATIN
     Indication: ASTHMA PROPHYLAXIS
     Dosage: 500000 IU (INTERNATIONAL UNIT) DAILY;
     Route: 048
     Dates: start: 20150107, end: 20150107

REACTIONS (2)
  - Intentional product misuse [Unknown]
  - Angioedema [Recovered/Resolved]

NARRATIVE: CASE EVENT DATE: 20150107
